FAERS Safety Report 14510021 (Version 2)
Quarter: 2018Q1

REPORT INFORMATION
  Report Type: Report from Study
  Country: JP (occurrence: JP)
  Receive Date: 20180209
  Receipt Date: 20180309
  Transmission Date: 20180509
  Serious: Yes (Death)
  Sender: FDA-Public Use
  Company Number: JP-JT-EVA201800308KERYXP-001

PATIENT
  Age: 82 Year
  Sex: Male
  Weight: 60 kg

DRUGS (17)
  1. LENDORMIN [Concomitant]
     Active Substance: BROTIZOLAM
     Dosage: 0.25 MG, QD
     Route: 048
     Dates: start: 20150525
  2. NORVASC [Concomitant]
     Active Substance: AMLODIPINE BESYLATE
     Dosage: 5 MG, QD
     Route: 048
     Dates: start: 20130710
  3. NESP [Concomitant]
     Active Substance: DARBEPOETIN ALFA
     Dosage: 60 MICRO-G, UNK
     Route: 065
  4. SODIUM BICARBONATE. [Concomitant]
     Active Substance: SODIUM BICARBONATE
     Indication: DIABETIC NEPHROPATHY
     Dosage: 2 G, QD
     Route: 048
     Dates: start: 20140428
  5. NESP [Concomitant]
     Active Substance: DARBEPOETIN ALFA
     Dosage: 120 MICRO-G, UNK
     Route: 065
  6. KREMEZIN [Concomitant]
     Active Substance: ACTIVATED CHARCOAL
     Indication: DIABETIC NEPHROPATHY
     Dosage: 6 G, QD
     Route: 048
     Dates: start: 20140428
  7. NESP [Concomitant]
     Active Substance: DARBEPOETIN ALFA
     Dosage: 60 MICRO-G, UNK
     Route: 065
  8. RIONA [Suspect]
     Active Substance: FERRIC CITRATE ANHYDROUS
     Indication: HYPERPHOSPHATAEMIA
     Dosage: 250 MG, QD
     Route: 048
     Dates: start: 20151116, end: 20161224
  9. CARDENALIN [Concomitant]
     Active Substance: DOXAZOSIN MESYLATE
     Dosage: 1 MG, QD
     Route: 048
     Dates: start: 20140428
  10. FEBURIC [Concomitant]
     Active Substance: FEBUXOSTAT
     Dosage: 10 MG, QD
     Route: 048
     Dates: start: 20140428
  11. SIGMART [Concomitant]
     Active Substance: NICORANDIL
     Dosage: 10 MG, QD
     Route: 048
     Dates: start: 20150105
  12. NESP [Concomitant]
     Active Substance: DARBEPOETIN ALFA
     Indication: NEPHROGENIC ANAEMIA
     Dosage: 60 MICRO-G, UNK
     Route: 065
  13. HUMALOG MIX [Concomitant]
     Active Substance: INSULIN LISPRO
     Dosage: 12 IU, QD
     Route: 058
     Dates: start: 20140428
  14. LIVALO [Concomitant]
     Active Substance: PITAVASTATIN CALCIUM
     Dosage: 2 MG, QD
     Route: 048
     Dates: start: 20140728
  15. HALCION [Concomitant]
     Active Substance: TRIAZOLAM
     Dosage: 0.5 MG, QD
     Route: 048
     Dates: start: 20130710
  16. AZILVA [Concomitant]
     Active Substance: AZILSARTAN KAMEDOXOMIL
     Dosage: 40 MG, QD
     Route: 048
     Dates: start: 20131230
  17. KAYEXALATE [Concomitant]
     Active Substance: SODIUM POLYSTYRENE SULFONATE
     Dosage: 6.54 G, QD
     Route: 048
     Dates: start: 20150302

REACTIONS (1)
  - Cardiac failure congestive [Fatal]

NARRATIVE: CASE EVENT DATE: 20161222
